FAERS Safety Report 20645219 (Version 1)
Quarter: 2022Q1

REPORT INFORMATION
  Report Type: Report from Study
  Country: IN (occurrence: IN)
  Receive Date: 20220328
  Receipt Date: 20220328
  Transmission Date: 20220423
  Serious: Yes (Other)
  Sender: FDA-Public Use
  Company Number: IN-NOVARTISPH-NVSC2020IN029162

PATIENT
  Age: 50 Year
  Sex: Male

DRUGS (12)
  1. SIMULECT [Suspect]
     Active Substance: BASILIXIMAB
     Indication: Renal transplant
     Dosage: 20 MG
     Route: 042
     Dates: start: 20191113
  2. SIMULECT [Suspect]
     Active Substance: BASILIXIMAB
     Dosage: 20 MG
     Route: 042
     Dates: start: 20191117, end: 20191117
  3. SIMULECT [Suspect]
     Active Substance: BASILIXIMAB
     Dosage: 20 MG (I/V AS INFUSION X 2 NOS)
     Route: 041
  4. TACROLIMUS [Suspect]
     Active Substance: TACROLIMUS
     Indication: Product used for unknown indication
     Route: 065
  5. CELLCEPT [Concomitant]
     Active Substance: MYCOPHENOLATE MOFETIL
     Indication: Product used for unknown indication
     Dosage: 500 MG, BID (2-0-2)
     Route: 065
  6. PROGRAF [Concomitant]
     Active Substance: TACROLIMUS
     Indication: Product used for unknown indication
     Dosage: 2 MG, BID (2MG-0-2MG)
     Route: 065
  7. PREDNISOLONE [Concomitant]
     Active Substance: PREDNISOLONE
     Indication: Product used for unknown indication
     Dosage: 10 MG
     Route: 065
  8. CALCIUM CARBONATE\CHOLECALCIFEROL [Concomitant]
     Active Substance: CALCIUM CARBONATE\CHOLECALCIFEROL
     Indication: Product used for unknown indication
     Dosage: 500 MG (1-0-1)
     Route: 065
  9. CLOPILET [Concomitant]
     Indication: Product used for unknown indication
     Dosage: UNK (WITHHELD)
     Route: 065
  10. CEFTAS CL [Concomitant]
     Indication: Product used for unknown indication
     Dosage: UNK, BID (1-0-1)
     Route: 065
  11. PANTOCID [Concomitant]
     Indication: Product used for unknown indication
     Dosage: UNK, QD
     Route: 065
  12. RESTYL [Concomitant]
     Indication: Product used for unknown indication
     Dosage: UNK, PRN (IF NEEDED)
     Route: 065

REACTIONS (10)
  - Complications of transplanted kidney [Unknown]
  - Glomerulonephritis [Unknown]
  - Tubulointerstitial nephritis [Unknown]
  - Oedematous kidney [Unknown]
  - Kidney transplant rejection [Unknown]
  - Arteritis [Unknown]
  - Tissue infiltration [Unknown]
  - Arteriosclerosis [Unknown]
  - Weight increased [Unknown]
  - Immunosuppressant drug level increased [Unknown]

NARRATIVE: CASE EVENT DATE: 20200111
